FAERS Safety Report 6063064-8 (Version None)
Quarter: 2009Q1

REPORT INFORMATION
  Report Type: 
  Country: None (occurrence: None)
  Receive Date: 20090203
  Receipt Date: 20090121
  Transmission Date: 20090719
  Serious: Yes (Hospitalization)
  Sender: FDA-Public Use
  Company Number: PHHY2009DE02332

PATIENT
  Sex: Female

DRUGS (4)
  1. RIFUN [Interacting]
     Indication: GASTRITIS
     Route: 048
  2. LUDIOMIL [Suspect]
     Indication: DEPRESSION
     Dosage: 2.5 MG
     Route: 048
  3. LORAZEPAM [Interacting]
     Dosage: 2.5 MG DAILY
     Route: 048
  4. ALCOHOL [Interacting]
     Dosage: 1 L, UNK
     Dates: start: 20081101

REACTIONS (5)
  - ALCOHOL ABUSE [None]
  - DRUG ABUSE [None]
  - DRUG DEPENDENCE [None]
  - DRUG INTERACTION [None]
  - DRUG LEVEL INCREASED [None]
